FAERS Safety Report 11274370 (Version 1)
Quarter: 2015Q3

REPORT INFORMATION
  Report Type: Report from Study
  Country: US (occurrence: US)
  Receive Date: 20150715
  Receipt Date: 20150715
  Transmission Date: 20151125
  Serious: Yes (Other)
  Sender: FDA-Public Use
  Company Number: US-ABBVIE-15P-163-1425151-00

PATIENT
  Sex: Male

DRUGS (2)
  1. TRAMADOL. [Concomitant]
     Active Substance: TRAMADOL
     Indication: PRODUCT USED FOR UNKNOWN INDICATION
  2. HUMIRA [Suspect]
     Active Substance: ADALIMUMAB
     Indication: OSTEOARTHRITIS
     Route: 065
     Dates: start: 20140402, end: 20140619

REACTIONS (7)
  - Pain in extremity [Unknown]
  - Skin discolouration [Recovered/Resolved]
  - Hypoaesthesia [Unknown]
  - Urticaria [Recovered/Resolved]
  - Neck pain [Unknown]
  - Loss of consciousness [Recovered/Resolved]
  - Rash generalised [Recovered/Resolved]

NARRATIVE: CASE EVENT DATE: 20140402
